FAERS Safety Report 4788858-8 (Version None)
Quarter: 2005Q4

REPORT INFORMATION
  Report Type: 
  Country: None (occurrence: None)
  Receive Date: 20051005
  Receipt Date: 20050927
  Transmission Date: 20060501
  Serious: Yes (Hospitalization)
  Sender: FDA-Public Use
  Company Number: PHBS2005BE14131

PATIENT
  Age: 39 Year
  Sex: Female

DRUGS (1)
  1. DIOVAN [Suspect]
     Indication: HYPERTENSION
     Dosage: 160 MG/DAY
     Route: 048
     Dates: start: 20030401, end: 20050901

REACTIONS (4)
  - DRUG EXPOSURE DURING PREGNANCY [None]
  - INFECTION [None]
  - OLIGOHYDRAMNIOS [None]
  - VENTRICULAR SEPTAL DEFECT [None]
